FAERS Safety Report 6163479-3 (Version None)
Quarter: 2009Q2

REPORT INFORMATION
  Report Type: 
  Country: None (occurrence: None)
  Receive Date: 20090420
  Receipt Date: 20090420
  Transmission Date: 20091009
  Serious: Yes (Hospitalization)
  Sender: FDA-Public Use
  Company Number: None

PATIENT
  Sex: Male
  Weight: 83.1 kg

DRUGS (1)
  1. CYTARABINE [Suspect]
     Dosage: 18450
     Dates: start: 20090331, end: 20090405

REACTIONS (3)
  - DEHYDRATION [None]
  - HYPOTENSION [None]
  - SYNCOPE [None]
